FAERS Safety Report 5840514-0 (Version None)
Quarter: 2008Q3

REPORT INFORMATION
  Report Type: 
  Country: None (occurrence: None)
  Receive Date: 20080807
  Receipt Date: 20080729
  Transmission Date: 20090109
  Serious: Yes (Hospitalization)
  Sender: FDA-Public Use
  Company Number: 2008BI019326

PATIENT
  Age: 27 Year
  Sex: Female
  Weight: 125.1928 kg

DRUGS (9)
  1. TYSABRI [Suspect]
     Indication: MULTIPLE SCLEROSIS
     Dosage: 300 MG; QM; IV
     Route: 042
     Dates: start: 20080209
  2. YASMIN (CON.) [Concomitant]
  3. PROVIGIL (CON.) [Concomitant]
  4. ZOLPIDEM (CON.) [Concomitant]
  5. ZOMIG (CON.) [Concomitant]
  6. COPAXONE (PREV.) [Concomitant]
  7. REBIF (PREV.) [Concomitant]
  8. CORTICOSTEROIDS (PREV.) [Concomitant]
  9. IMURAN (PREV.) [Concomitant]

REACTIONS (4)
  - ADENOVIRAL CONJUNCTIVITIS [None]
  - CORNEAL LESION [None]
  - HYPERTHYROIDISM [None]
  - URINARY TRACT INFECTION [None]
